FAERS Safety Report 24558034 (Version 1)
Quarter: 2024Q4

REPORT INFORMATION
  Report Type: Spontaneous
  Country: US (occurrence: US)
  Receive Date: 20241028
  Receipt Date: 20241028
  Transmission Date: 20250115
  Serious: No
  Sender: ABBVIE
  Company Number: US-ABBVIE-5980318

PATIENT
  Sex: Female

DRUGS (8)
  1. RINVOQ [Suspect]
     Active Substance: UPADACITINIB
     Indication: Psoriatic arthropathy
     Dosage: STRENGTH: 15 MG
     Route: 048
  2. PRAZOSIN HYDROCHLORIDE [Concomitant]
     Active Substance: PRAZOSIN HYDROCHLORIDE
     Indication: Product used for unknown indication
  3. SPIRONOLACTONE [Concomitant]
     Active Substance: SPIRONOLACTONE
     Indication: Product used for unknown indication
  4. VITAMIN C [Concomitant]
     Active Substance: ASCORBIC ACID
     Indication: Product used for unknown indication
  5. HERBALS [Concomitant]
     Active Substance: HERBALS
     Indication: Product used for unknown indication
  6. VITAMIN E [Concomitant]
     Active Substance: .ALPHA.-TOCOPHEROL
     Indication: Product used for unknown indication
  7. VITAMIN D3 [Concomitant]
     Active Substance: CHOLECALCIFEROL
     Indication: Product used for unknown indication
  8. FISH OIL [Concomitant]
     Active Substance: FISH OIL
     Indication: Product used for unknown indication

REACTIONS (10)
  - Epistaxis [Unknown]
  - Hepatic enzyme increased [Unknown]
  - Blood cholesterol increased [Unknown]
  - Blood pressure increased [Unknown]
  - Drug ineffective [Unknown]
  - Peripheral swelling [Unknown]
  - Insomnia [Unknown]
  - Arthritis [Unknown]
  - Joint swelling [Unknown]
  - Psoriasis [Unknown]
